FAERS Safety Report 6832474-0 (Version None)
Quarter: 2010Q3

REPORT INFORMATION
  Report Type: 
  Country: None (occurrence: None)
  Receive Date: 20100712
  Receipt Date: 20100702
  Transmission Date: 20110219
  Serious: Yes (Other)
  Sender: FDA-Public Use
  Company Number: PL-BAXTER-2010BH016187

PATIENT
  Sex: Male

DRUGS (5)
  1. DIANEAL [Suspect]
     Indication: PERITONEAL DIALYSIS
     Route: 033
     Dates: start: 20080818
  2. DIANEAL [Suspect]
     Route: 033
     Dates: start: 20080818
  3. DIANEAL [Suspect]
     Route: 033
     Dates: start: 20080818
  4. DIANEAL [Suspect]
     Route: 033
     Dates: start: 20080818
  5. EXTRANEAL [Suspect]
     Indication: PERITONEAL DIALYSIS
     Route: 033
     Dates: start: 20090101

REACTIONS (1)
  - FUNGAL PERITONITIS [None]
